FAERS Safety Report 13685300 (Version 1)
Quarter: 2017Q2

REPORT INFORMATION
  Report Type: Spontaneous
  Country: US (occurrence: US)
  Receive Date: 20170623
  Receipt Date: 20170623
  Transmission Date: 20170830
  Serious: Yes (Other)
  Sender: FDA-Public Use
  Company Number: US-GLAXOSMITHKLINE-US2017GSK096058

PATIENT
  Sex: Female

DRUGS (1)
  1. LAMICTAL [Suspect]
     Active Substance: LAMOTRIGINE
     Indication: EPILEPSY
     Dosage: 300MCG AT NIGHT, 25MCG IN AM
     Dates: start: 200803

REACTIONS (2)
  - Umbilical hernia [Unknown]
  - Umbilical hernia repair [Unknown]

NARRATIVE: CASE EVENT DATE: 2017
